FAERS Safety Report 24110885 (Version 1)
Quarter: 2024Q3

REPORT INFORMATION
  Report Type: Spontaneous
  Country: US (occurrence: None)
  Receive Date: 20240717
  Receipt Date: 20240717
  Transmission Date: 20241017
  Serious: Yes (Life-Threatening)
  Sender: Public
  Company Number: None

PATIENT
  Age: 73 Year
  Sex: Female
  Weight: 54 kg

DRUGS (2)
  1. ACTEMRA [Suspect]
     Active Substance: TOCILIZUMAB
     Indication: Rheumatoid arthritis
     Dosage: 440 MG EVERY 4  WEEKS INTRAVENOUS DRIP
     Route: 041
     Dates: start: 20231016
  2. ACTEMRA [Suspect]
     Active Substance: TOCILIZUMAB
     Dates: start: 20231023, end: 20240715

REACTIONS (5)
  - Sepsis [None]
  - Cellulitis [None]
  - Abscess [None]
  - Blood culture positive [None]
  - Streptococcus test positive [None]

NARRATIVE: CASE EVENT DATE: 20240713
